FAERS Safety Report 7827909-0 (Version None)
Quarter: 2011Q4

REPORT INFORMATION
  Report Type: 
  Country: None (occurrence: None)
  Receive Date: 20111019
  Receipt Date: 20111005
  Transmission Date: 20120403
  Serious: Yes (Death, Hospitalization)
  Sender: FDA-Public Use
  Company Number: 2011PL000138

PATIENT
  Age: 74 Year
  Sex: Female

DRUGS (4)
  1. CYCLOSPORINE [Concomitant]
  2. PREDNISOLONE [Concomitant]
  3. AZATHIOPRINE [Suspect]
     Indication: MYELODYSPLASTIC SYNDROME
     Dosage: 50 MG; QD
     Dates: start: 20020401, end: 20060201
  4. AZATHIOPRINE [Suspect]
     Indication: APLASIA PURE RED CELL
     Dosage: 50 MG; QD
     Dates: start: 20020401, end: 20060201

REACTIONS (9)
  - JC VIRUS INFECTION [None]
  - LYMPHOCYTE COUNT DECREASED [None]
  - DISEASE RECURRENCE [None]
  - PROGRESSIVE MULTIFOCAL LEUKOENCEPHALOPATHY [None]
  - FALL [None]
  - FEMORAL NECK FRACTURE [None]
  - BACTERIAL INFECTION [None]
  - FUNGAL INFECTION [None]
  - PNEUMONIA [None]
